FAERS Safety Report 4527551-3 (Version None)
Quarter: 2004Q4

REPORT INFORMATION
  Report Type: 
  Country: None (occurrence: None)
  Receive Date: 20041215
  Receipt Date: 20040920
  Transmission Date: 20050328
  Serious: Yes (Other)
  Sender: FDA-Public Use
  Company Number: US-BRISTOL-MYERS SQUIBB COMPANY-12794368

PATIENT

DRUGS (8)
  1. CYCLOPHOSPHAMIDE [Suspect]
     Indication: LYMPHOMA
     Dosage: TOTAL DOSE: 7200 MG/M2
     Route: 042
  2. CARBOPLATIN [Suspect]
     Indication: LYMPHOMA
     Dosage: TOTAL DOSE: 1600 MG/M2
     Route: 042
  3. ETOPOSIDE [Suspect]
     Indication: LYMPHOMA
     Dosage: TOTAL DOSE: 1600 MG/M2
     Route: 042
  4. INTERFERON ALFA-2B [Suspect]
     Indication: LYMPHOMA
     Dosage: INITIATED 1 X10^6/M2; INCR'D TO 2 X10^6/M2 AFTER 1 MO; FINAL DOSE 3 X10^6/M2 AFTER 2ND MO
     Route: 058
  5. NEOSPORIN G.U. [Concomitant]
  6. MESNA [Concomitant]
     Route: 042
  7. CIPROFLOXACIN [Concomitant]
  8. TRIMETHOPRIM-SULFAMETHOXAZOLE [Concomitant]
     Dosage: 1 DOUBLE-STRENGTH TABLET
     Route: 048

REACTIONS (1)
  - CARDIAC ARREST [None]
